FAERS Safety Report 17790564 (Version 2)
Quarter: 2025Q4

REPORT INFORMATION
  Report Type: Spontaneous
  Country: US (occurrence: US)
  Receive Date: 20200514
  Receipt Date: 20251114
  Transmission Date: 20260117
  Serious: Yes (Disabling, Other)
  Sender: NOVO NORDISK
  Company Number: US-NOVOPROD-727605

PATIENT
  Sex: Female

DRUGS (1)
  1. LEVEMIR [Suspect]
     Active Substance: INSULIN DETEMIR
     Indication: Type 2 diabetes mellitus
     Dosage: 30 IU, BID (AT MORNING, AT NIGHT)
     Route: 058

REACTIONS (8)
  - Diabetic retinopathy [Recovering/Resolving]
  - Cerebral artery occlusion [Unknown]
  - Eye haemorrhage [Unknown]
  - Cerebrovascular accident [Unknown]
  - Cataract [Unknown]
  - IIIrd nerve paralysis [Unknown]
  - Hypertension [Unknown]
  - Blood cholesterol increased [Unknown]

NARRATIVE: CASE EVENT DATE: 20190331
